FAERS Safety Report 4733229-3 (Version None)
Quarter: 2005Q3

REPORT INFORMATION
  Report Type: 
  Country: None (occurrence: None)
  Receive Date: 20050725
  Receipt Date: 20050215
  Transmission Date: 20060218
  Serious: Yes (Hospitalization)
  Sender: FDA-Public Use
  Company Number: USA-2005-0018898

PATIENT
  Sex: Male

DRUGS (2)
  1. MS CONTIN [Suspect]
  2. DURAGESIC-100 [Suspect]

REACTIONS (1)
  - OVERDOSE [None]
